FAERS Safety Report 6405064-1 (Version None)
Quarter: 2009Q4

REPORT INFORMATION
  Report Type: 
  Country: None (occurrence: None)
  Receive Date: 20091019
  Receipt Date: 20091007
  Transmission Date: 20100525
  Serious: Yes (Hospitalization)
  Sender: FDA-Public Use
  Company Number: FR-PFIZER INC-2009279348

PATIENT
  Age: 85 Year

DRUGS (8)
  1. ALDACTONE [Suspect]
     Dosage: 75 MG, 1X/DAY
     Route: 048
  2. ESCITALOPRAM [Suspect]
     Dosage: 10 MG, 1X/DAY
     Route: 048
     Dates: start: 20090921, end: 20090922
  3. LEVOTHYROXINE SODIUM [Concomitant]
     Dosage: 100 UG, 1X/DAY
  4. TEMESTA [Concomitant]
     Dosage: 1 MG, 1X/DAY
  5. PROPOFAN [Concomitant]
  6. GLUCOPHAGE [Concomitant]
  7. DIOSMINE [Concomitant]
  8. ARIXTRA [Concomitant]
     Dosage: 1 DF, 1X/DAY
     Dates: start: 20090922, end: 20090922

REACTIONS (3)
  - FALL [None]
  - HYPONATRAEMIA [None]
  - HYPOTENSION [None]
